FAERS Safety Report 10203520 (Version 1)
Quarter: 2014Q2

REPORT INFORMATION
  Report Type: Report from Study
  Country: US (occurrence: US)
  Receive Date: 20140529
  Receipt Date: 20140529
  Transmission Date: 20141212
  Serious: Yes (Other)
  Sender: FDA-Public Use
  Company Number: US-PURDUE-USA-2014-0114261

PATIENT
  Sex: Female

DRUGS (4)
  1. OXY CR TAB [Suspect]
     Indication: INTERVERTEBRAL DISC DISPLACEMENT
     Dosage: 320 MG, TID
     Route: 048
  2. OXY CR TAB [Suspect]
     Indication: HEADACHE
     Dosage: UNK
     Route: 048
     Dates: start: 200411
  3. MS CONTIN TABLETS [Suspect]
     Indication: INTERVERTEBRAL DISC DISPLACEMENT
     Dosage: 200 MG, BID
  4. MS CONTIN TABLETS [Suspect]
     Indication: HEADACHE

REACTIONS (5)
  - Delirium tremens [Unknown]
  - Mental impairment [Unknown]
  - Feeling abnormal [Unknown]
  - Euphoric mood [Unknown]
  - Drug ineffective [Unknown]
